FAERS Safety Report 5033589-2 (Version None)
Quarter: 2006Q2

REPORT INFORMATION
  Report Type: 
  Country: None (occurrence: None)
  Receive Date: 20060620
  Receipt Date: 20060602
  Transmission Date: 20061013
  Serious: Yes (Hospitalization, Disabling)
  Sender: FDA-Public Use
  Company Number: 2006RR-02553

PATIENT
  Age: 19 Year
  Sex: Female

DRUGS (1)
  1. DOXYCYCLINE [Suspect]
     Indication: MALARIA PROPHYLAXIS
     Dosage: 100 MG, QD, ORAL
     Route: 048

REACTIONS (12)
  - COLOUR BLINDNESS [None]
  - CSF PRESSURE INCREASED [None]
  - HAEMORRHAGE [None]
  - HEADACHE [None]
  - INTRACRANIAL PRESSURE INCREASED [None]
  - OPTIC ATROPHY [None]
  - OPTIC DISC HAEMORRHAGE [None]
  - PAPILLOEDEMA [None]
  - RETINAL EXUDATES [None]
  - VISION BLURRED [None]
  - VISUAL FIELD DEFECT [None]
  - VOMITING [None]
